FAERS Safety Report 8617605-4 (Version None)
Quarter: 2012Q3

REPORT INFORMATION
  Report Type: 
  Country: None (occurrence: None)
  Receive Date: 20120824
  Receipt Date: 20111129
  Transmission Date: 20120928
  Serious: No
  Sender: FDA-Public Use
  Company Number: US-ASTRAZENECA-2011SE72600

PATIENT
  Age: 60 Year
  Sex: Female
  Weight: 56.7 kg

DRUGS (5)
  1. SYMBICORT [Suspect]
     Indication: CHRONIC OBSTRUCTIVE PULMONARY DISEASE
     Dosage: 160/4.5 MCG BID
     Route: 055
     Dates: start: 20111009, end: 20111125
  2. SYMBICORT [Suspect]
     Route: 055
  3. SINGULAIR [Concomitant]
     Dosage: ONE AT NIGHT
  4. DUANEB [Concomitant]
     Dosage: UNKNOWN
  5. ALBUTEROL [Concomitant]
     Dosage: PRN

REACTIONS (8)
  - ADVERSE DRUG REACTION [None]
  - DYSPHONIA [None]
  - OROPHARYNGEAL PAIN [None]
  - SINUSITIS [None]
  - COUGH [None]
  - SLEEP DISORDER DUE TO A GENERAL MEDICAL CONDITION [None]
  - HUNGER [None]
  - NERVOUSNESS [None]
